FAERS Safety Report 9091306 (Version 1)
Quarter: 2013Q1

REPORT INFORMATION
  Report Type: Spontaneous
  Country: US (occurrence: US)
  Receive Date: 20130201
  Receipt Date: 20130201
  Transmission Date: 20140127
  Serious: No
  Sender: FDA-Public Use
  Company Number: US-PFIZER INC-2013042587

PATIENT
  Age: 65 Year
  Sex: Female

DRUGS (3)
  1. PRISTIQ [Suspect]
     Indication: DEPRESSION
     Dosage: 100 MG, UNK
     Dates: start: 20091112
  2. PRISTIQ [Suspect]
     Dosage: 50 MG, UNK
  3. ABILIFY [Concomitant]
     Dosage: UNK

REACTIONS (2)
  - Hepatic enzyme increased [Unknown]
  - Drug withdrawal syndrome [Unknown]
